FAERS Safety Report 19076274 (Version 1)
Quarter: 2021Q1

REPORT INFORMATION
  Report Type: Spontaneous
  Country: CH (occurrence: CH)
  Receive Date: 20210330
  Receipt Date: 20210330
  Transmission Date: 20210420
  Serious: Yes (Other)
  Sender: FDA-Public Use
  Company Number: CH-BRISTOL-MYERS SQUIBB COMPANY-BMS-2021-029768

PATIENT
  Age: 14 Year
  Sex: Female

DRUGS (3)
  1. IPILIMUMAB [Suspect]
     Active Substance: IPILIMUMAB
     Indication: NAEVOID MELANOMA
     Dosage: UNK
     Route: 065
     Dates: start: 201708, end: 201711
  2. NIVOLUMAB [Suspect]
     Active Substance: NIVOLUMAB
     Indication: NAEVOID MELANOMA
     Dosage: UNK
     Route: 065
     Dates: start: 201903
  3. IPILIMUMAB [Suspect]
     Active Substance: IPILIMUMAB
     Dosage: UNK
     Route: 065
     Dates: start: 201903

REACTIONS (1)
  - Orbital myositis [Unknown]
